FAERS Safety Report 16498341 (Version 1)
Quarter: 2019Q2

REPORT INFORMATION
  Report Type: Spontaneous
  Country: JP (occurrence: JP)
  Receive Date: 20190629
  Receipt Date: 20190629
  Transmission Date: 20190711
  Serious: Yes (Hospitalization, Other)
  Sender: FDA-Public Use
  Company Number: JP-ACCORD-135271

PATIENT
  Age: 22 Year
  Sex: Female

DRUGS (4)
  1. MYCOPHENOLIC ACID. [Suspect]
     Active Substance: MYCOPHENOLIC ACID
     Indication: PROPHYLAXIS AGAINST GRAFT VERSUS HOST DISEASE
  2. TACROLIMUS. [Suspect]
     Active Substance: TACROLIMUS
     Indication: PROPHYLAXIS AGAINST GRAFT VERSUS HOST DISEASE
  3. PREDNISOLONE. [Suspect]
     Active Substance: PREDNISOLONE
     Indication: ENGRAFTMENT SYNDROME
  4. METHYLPREDNISOLONE. [Suspect]
     Active Substance: METHYLPREDNISOLONE
     Indication: ENGRAFTMENT SYNDROME

REACTIONS (5)
  - Viraemia [Recovering/Resolving]
  - BK virus infection [Recovering/Resolving]
  - Human herpesvirus 6 infection [Recovering/Resolving]
  - Viral haemorrhagic cystitis [Recovering/Resolving]
  - Meningomyelitis herpes [Recovering/Resolving]
